FAERS Safety Report 10901211 (Version 1)
Quarter: 2015Q1

REPORT INFORMATION
  Report Type: Other
  Country: DE (occurrence: DE)
  Receive Date: 20150310
  Receipt Date: 20150310
  Transmission Date: 20150721
  Serious: Yes (Other)
  Sender: FDA-Public Use
  Company Number: DE-SUN PHARMACEUTICAL INDUSTRIES LTD-2015SUN00650

PATIENT

DRUGS (3)
  1. ABRAXANE [Suspect]
     Active Substance: PACLITAXEL
     Indication: PANCREATIC CARCINOMA METASTATIC
     Dosage: 125 MG/M2, UNK
     Route: 042
     Dates: start: 20150116
  2. GEMCITABINE [Suspect]
     Active Substance: GEMCITABINE\GEMCITABINE HYDROCHLORIDE
     Indication: PANCREATIC CARCINOMA METASTATIC
     Dosage: 1000 MG/M2, UNK
     Route: 042
     Dates: start: 20150116
  3. CEFOTAXIME [Suspect]
     Active Substance: CEFOTAXIME\CEFOTAXIME SODIUM
     Indication: PNEUMONIA
     Dosage: 2 G, BID
     Route: 042
     Dates: start: 20150116, end: 20150126

REACTIONS (5)
  - Dermatitis exfoliative [Recovering/Resolving]
  - Impaired healing [Unknown]
  - Skin exfoliation [Unknown]
  - Dry skin [Unknown]
  - Pruritus [Recovering/Resolving]

NARRATIVE: CASE EVENT DATE: 20150128
